FAERS Safety Report 8974094 (Version 1)
Quarter: 2012Q4

REPORT INFORMATION
  Report Type: Spontaneous
  Country: US (occurrence: None)
  Receive Date: 20121217
  Receipt Date: 20121217
  Transmission Date: 20130627
  Serious: Yes (Hospitalization, Other)
  Sender: FDA-Public Use
  Company Number: None

PATIENT
  Sex: Female
  Weight: 121.56 kg

DRUGS (1)
  1. LOVENOX [Suspect]
     Dates: start: 20120724, end: 20120726

REACTIONS (5)
  - Rash macular [None]
  - Rash pruritic [None]
  - Pyrexia [None]
  - Rash pustular [None]
  - Blister [None]
